FAERS Safety Report 9097261 (Version 2)
Quarter: 2014Q1

REPORT INFORMATION
  Report Type: Spontaneous
  Country: FR (occurrence: FR)
  Receive Date: 20130212
  Receipt Date: 20140305
  Transmission Date: 20141002
  Serious: Yes (Hospitalization)
  Sender: FDA-Public Use
  Company Number: PHHY2013FR013715

PATIENT
  Age: 32 Year
  Sex: Female

DRUGS (2)
  1. AMOXICILLIN+CLAVULANATE SANDOZ [Suspect]
     Route: 048
     Dates: start: 20120318, end: 20120318
  2. PREDNISOLONE SANDOZ [Suspect]
     Route: 048
     Dates: start: 20120318, end: 20120318

REACTIONS (2)
  - Dysphonia [Recovering/Resolving]
  - Erythema [Recovering/Resolving]
